FAERS Safety Report 5523532-1 (Version None)
Quarter: 2007Q4

REPORT INFORMATION
  Report Type: 
  Country: None (occurrence: None)
  Receive Date: 20071121
  Receipt Date: 20071109
  Transmission Date: 20080405
  Serious: Yes (Other)
  Sender: FDA-Public Use
  Company Number: GB-ROCHE-480346

PATIENT

DRUGS (1)
  1. ISOTRETINOIN [Suspect]
     Indication: SYSTEMIC SCLEROSIS
     Route: 065

REACTIONS (1)
  - PLEURAL EFFUSION [None]
